FAERS Safety Report 22837755 (Version 3)
Quarter: 2025Q1

REPORT INFORMATION
  Report Type: Spontaneous
  Country: SK (occurrence: SK)
  Receive Date: 20230818
  Receipt Date: 20250311
  Transmission Date: 20250408
  Serious: Yes (Other)
  Sender: AUROBINDO
  Company Number: SK-SAMIL-GLO2023SK004810

PATIENT
  Age: 51 Year
  Sex: Female

DRUGS (5)
  1. MELPHALAN [Suspect]
     Active Substance: MELPHALAN
     Indication: Autologous haematopoietic stem cell transplant
     Route: 065
     Dates: start: 20220214
  2. BORTEZOMIB [Suspect]
     Active Substance: BORTEZOMIB
     Indication: Amyloidosis
     Route: 065
  3. CYCLOPHOSPHAMIDE [Suspect]
     Active Substance: CYCLOPHOSPHAMIDE
     Indication: Amyloidosis
     Route: 065
  4. DEXAMETHASONE [Suspect]
     Active Substance: DEXAMETHASONE
     Indication: Amyloidosis
     Route: 065
  5. VINORELBINE TARTRATE [Suspect]
     Active Substance: VINORELBINE TARTRATE
     Indication: Product used for unknown indication
     Route: 065

REACTIONS (10)
  - Thrombocytopenia [Unknown]
  - Engraftment syndrome [Unknown]
  - Gastrointestinal haemorrhage [Unknown]
  - Cytomegalovirus infection reactivation [Unknown]
  - Liver disorder [Unknown]
  - Febrile neutropenia [Unknown]
  - Escherichia bacteraemia [Unknown]
  - Condition aggravated [Unknown]
  - Enterocolitis haemorrhagic [Unknown]
  - Off label use [Unknown]
